FAERS Safety Report 20017678 (Version 3)
Quarter: 2021Q4

REPORT INFORMATION
  Report Type: Spontaneous
  Country: DE (occurrence: DE)
  Receive Date: 20211031
  Receipt Date: 20211122
  Transmission Date: 20220303
  Serious: Yes (Hospitalization)
  Sender: FDA-Public Use
  Company Number: DE-009507513-2110DEU007981

PATIENT
  Sex: Male

DRUGS (2)
  1. KEYTRUDA [Suspect]
     Active Substance: PEMBROLIZUMAB
     Indication: Lung disorder
     Dosage: 5X (IN TOTAL)
  2. PEMETREXED [Suspect]
     Active Substance: PEMETREXED
     Indication: Lung disorder

REACTIONS (2)
  - Dyspnoea [Unknown]
  - Cyanosis [Unknown]
